FAERS Safety Report 11137354 (Version 2)
Quarter: 2015Q3

REPORT INFORMATION
  Report Type: Spontaneous
  Country: JP (occurrence: JP)
  Receive Date: 20150526
  Receipt Date: 20150730
  Transmission Date: 20151125
  Serious: Yes (Death, Hospitalization)
  Sender: FDA-Public Use
  Company Number: JP-DSJP-DSJ-2015-113601

PATIENT

DRUGS (13)
  1. URSODEOXYCHOLIC ACID [Concomitant]
     Active Substance: URSODIOL
     Indication: HEPATIC FUNCTION ABNORMAL
     Dosage: 100 MG, TID
     Route: 048
     Dates: start: 20150122, end: 20150123
  2. CRESTOR [Concomitant]
     Active Substance: ROSUVASTATIN CALCIUM
     Indication: DYSLIPIDAEMIA
     Dosage: 5 MG, QD
     Route: 048
     Dates: start: 20110517, end: 20150123
  3. SARPOGRELATE HYDROCHLORIDE [Suspect]
     Active Substance: SARPOGRELATE
     Indication: PERIPHERAL ARTERIAL OCCLUSIVE DISEASE
     Dosage: 100 MG, BID
     Route: 048
     Dates: start: 20140805, end: 20150123
  4. SEIBULE [Concomitant]
     Active Substance: MIGLITOL
     Indication: DIABETES MELLITUS
     Dosage: 50 MG, TID
     Route: 048
     Dates: start: 20131101, end: 20150123
  5. GENINAX [Concomitant]
     Active Substance: GARENOXACIN MESYLATE
     Indication: PNEUMONIA
     Dosage: 200 MG, QD
     Route: 048
     Dates: start: 20150120, end: 20150123
  6. BAYASPIRIN [Suspect]
     Active Substance: ASPIRIN
     Indication: CEREBRAL INFARCTION
     Dosage: 100 MG, QD
     Route: 048
     Dates: start: 20110517, end: 20150123
  7. GLUFAST [Concomitant]
     Active Substance: MITIGLINIDE
     Indication: DIABETES MELLITUS
     Dosage: 10 MG, TID
     Route: 048
     Dates: start: 20140212, end: 20150123
  8. ASPARA POTASSIUM [Concomitant]
     Active Substance: POTASSIUM ASPARTATE
     Indication: HYPOKALAEMIA
     Dosage: 800 MG, TID
     Route: 048
     Dates: start: 20150116, end: 20150123
  9. SULBACILLIN [Concomitant]
     Active Substance: AMPICILLIN SODIUM\SULBACTAM SODIUM
     Indication: PNEUMONIA
     Dosage: 1.5 G, TID
     Route: 042
     Dates: start: 20150111, end: 20150118
  10. LIXIANA TABLETS [Suspect]
     Active Substance: EDOXABAN TOSILATE MONOHYDRATE
     Indication: CEREBRAL INFARCTION
     Dosage: 30 MG, QD
     Route: 048
     Dates: start: 20150110, end: 20150123
  11. NEXIUM [Concomitant]
     Active Substance: ESOMEPRAZOLE MAGNESIUM
     Indication: PROPHYLAXIS AGAINST GASTROINTESTINAL ULCER
     Dosage: 20 MG, QD
     Route: 048
     Dates: start: 20130108, end: 20150123
  12. EQUA [Concomitant]
     Active Substance: VILDAGLIPTIN
     Indication: DIABETES MELLITUS
     Dosage: 50 MG, BID
     Route: 048
     Dates: start: 20130304, end: 20150123
  13. DIART [Concomitant]
     Active Substance: AZOSEMIDE
     Indication: CARDIAC FAILURE CHRONIC
     Dosage: 30 MG, QD
     Route: 048
     Dates: start: 20131028, end: 20150123

REACTIONS (4)
  - Shock haemorrhagic [Fatal]
  - Epistaxis [Recovered/Resolved]
  - Duodenal ulcer haemorrhage [Fatal]
  - Pneumonia aspiration [Recovering/Resolving]

NARRATIVE: CASE EVENT DATE: 20150111
